FAERS Safety Report 17888052 (Version 1)
Quarter: 2020Q2

REPORT INFORMATION
  Report Type: Report from Study
  Country: US (occurrence: US)
  Receive Date: 20200612
  Receipt Date: 20200612
  Transmission Date: 20200714
  Serious: Yes (Disabling, Other)
  Sender: FDA-Public Use
  Company Number: US-SA-2019SA186113

PATIENT

DRUGS (2)
  1. ALEMTUZUMAB [Suspect]
     Active Substance: ALEMTUZUMAB
     Indication: MULTIPLE SCLEROSIS
     Dosage: 12 MG, QD
     Route: 041
     Dates: start: 20160627, end: 20160701
  2. ALEMTUZUMAB [Suspect]
     Active Substance: ALEMTUZUMAB
     Dosage: 12 MG QD
     Route: 041
     Dates: start: 20170809

REACTIONS (6)
  - Wheelchair user [Unknown]
  - Therapeutic response decreased [Unknown]
  - Speech disorder [Unknown]
  - Condition aggravated [Unknown]
  - Progressive multiple sclerosis [Unknown]
  - Therapeutic response unexpected [Unknown]
